FAERS Safety Report 8773184 (Version 2)
Quarter: 2012Q4

REPORT INFORMATION
  Report Type: 
  Country: US (occurrence: US)
  Receive Date: 20120907
  Receipt Date: 20120918
  Transmission Date: 20130627
  Serious: Yes (Other)
  Sender: FDA-Public Use
  Company Number: US-SANOFI-AVENTIS-2012SA062729

PATIENT
  Age: 58 Year
  Sex: Female

DRUGS (8)
  1. ARAVA [Suspect]
     Indication: RHEUMATOID ARTHRITIS
     Route: 048
     Dates: start: 1995, end: 201105
  2. ARAVA [Suspect]
     Indication: RHEUMATOID ARTHRITIS
     Route: 065
     Dates: start: 201204
  3. ATORVASTATIN [Suspect]
     Route: 065
     Dates: start: 2002, end: 201208
  4. LEFLUNOMIDE [Suspect]
     Route: 065
     Dates: start: 1995, end: 201105
  5. LEFLUNOMIDE [Suspect]
     Route: 065
  6. JANUVIA [Suspect]
     Route: 065
     Dates: start: 201109, end: 201208
  7. METFORMIN [Concomitant]
  8. VALSARTAN [Concomitant]

REACTIONS (9)
  - Hepatic steatosis [Unknown]
  - Alanine aminotransferase increased [Unknown]
  - Aspartate aminotransferase increased [Unknown]
  - Blood alkaline phosphatase increased [Unknown]
  - Staphylococcal infection [Unknown]
  - Furuncle [Unknown]
  - Infection [Unknown]
  - Abasia [Unknown]
  - Arthropod bite [Unknown]
